FAERS Safety Report 5368653-1 (Version None)
Quarter: 2007Q2

REPORT INFORMATION
  Report Type: 
  Country: None (occurrence: None)
  Receive Date: 20070620
  Receipt Date: 20061110
  Transmission Date: 20071010
  Serious: No
  Sender: FDA-Public Use
  Company Number: 002#4#2006-00322

PATIENT
  Age: 78 Year
  Sex: Female

DRUGS (1)
  1. UNIVASC [Suspect]
     Dosage: ORAL
     Route: 048

REACTIONS (2)
  - BLOOD PRESSURE SYSTOLIC DECREASED [None]
  - TACHYCARDIA [None]
